FAERS Safety Report 7937550-7 (Version None)
Quarter: 2011Q4

REPORT INFORMATION
  Report Type: 
  Country: None (occurrence: None)
  Receive Date: 20111123
  Receipt Date: 20111114
  Transmission Date: 20120403
  Serious: Yes (Hospitalization)
  Sender: FDA-Public Use
  Company Number: CA-ASTRAZENECA-2011SE68841

PATIENT
  Age: 14 Year
  Sex: Male

DRUGS (7)
  1. TRIAMCINOLONE [Suspect]
     Route: 030
  2. METHOTREXATE [Concomitant]
  3. BENADRYL [Suspect]
     Route: 065
  4. PREDNISONE TAB [Concomitant]
  5. XOLAIR [Suspect]
     Route: 058
  6. SYMBICORT [Suspect]
     Route: 055
  7. TRIAMCINOLONE [Suspect]
     Route: 051

REACTIONS (20)
  - VISUAL IMPAIRMENT [None]
  - RASH [None]
  - VOMITING [None]
  - NAUSEA [None]
  - ANGER [None]
  - THINKING ABNORMAL [None]
  - HYPOPHAGIA [None]
  - MOOD SWINGS [None]
  - ABNORMAL BEHAVIOUR [None]
  - RASH ERYTHEMATOUS [None]
  - COUGH [None]
  - CRYING [None]
  - PULMONARY FUNCTION TEST DECREASED [None]
  - LACRIMATION INCREASED [None]
  - EMOTIONAL DISORDER [None]
  - ERYTHEMA [None]
  - ASTHMA [None]
  - PRURITUS [None]
  - AGGRESSION [None]
  - DIZZINESS [None]
